FAERS Safety Report 12243716 (Version 11)
Quarter: 2018Q4

REPORT INFORMATION
  Report Type: Spontaneous
  Country: US (occurrence: US)
  Receive Date: 20160406
  Receipt Date: 20181221
  Transmission Date: 20190204
  Serious: Yes (Hospitalization)
  Sender: FDA-Public Use
  Company Number: US-ACTELION PHARMACEUTICALS US, INC.-A-NJ2016-133995

PATIENT
  Age: 54 Year
  Sex: Female
  Weight: 63.49 kg

DRUGS (4)
  1. OPSUMIT [Suspect]
     Active Substance: MACITENTAN
     Indication: PULMONARY ARTERIAL HYPERTENSION
     Dosage: 10 MG, QD
     Route: 048
     Dates: start: 20150416
  2. REMODULIN [Suspect]
     Active Substance: TREPROSTINIL
     Indication: PRODUCT USED FOR UNKNOWN INDICATION
     Dosage: UNK
     Route: 058
     Dates: end: 20180912
  3. REMODULIN [Suspect]
     Active Substance: TREPROSTINIL
     Dosage: UNK
     Route: 042
  4. REVATIO [Concomitant]
     Active Substance: SILDENAFIL CITRATE

REACTIONS (17)
  - Unevaluable event [Unknown]
  - Catheter management [Unknown]
  - Incorrect dose administered by device [Unknown]
  - Vomiting [Unknown]
  - Subcutaneous abscess [Unknown]
  - Headache [Unknown]
  - Panic reaction [Unknown]
  - Infusion site extravasation [Unknown]
  - Dyspnoea [Unknown]
  - Hospitalisation [Unknown]
  - Nausea [Unknown]
  - Infusion site erythema [Unknown]
  - Infusion site pain [Unknown]
  - Device breakage [Unknown]
  - Infusion site irritation [Unknown]
  - Infusion site swelling [Unknown]
  - Device leakage [Unknown]

NARRATIVE: CASE EVENT DATE: 20181114
